FAERS Safety Report 19101406 (Version 1)
Quarter: 2021Q2

REPORT INFORMATION
  Report Type: Spontaneous
  Country: FR (occurrence: FR)
  Receive Date: 20210407
  Receipt Date: 20210407
  Transmission Date: 20210717
  Serious: Yes (Hospitalization)
  Sender: FDA-Public Use
  Company Number: FR-TEVA-2021-FR-1897719

PATIENT
  Age: 57 Year
  Sex: Female
  Weight: 58 kg

DRUGS (14)
  1. CEFOTAXIME SODIQUE [Concomitant]
     Active Substance: CEFOTAXIME SODIUM
  2. ROVAMYCINE [Concomitant]
     Active Substance: SPIRAMYCIN
  3. PANTOPRAZOLE [Suspect]
     Active Substance: PANTOPRAZOLE
     Route: 065
  4. NORADRENALINE RENAUDIN [Suspect]
     Active Substance: NOREPINEPHRINE BITARTRATE
     Indication: SEPTIC SHOCK
     Dosage: 2.4 MG
     Route: 042
     Dates: start: 20210223, end: 20210301
  5. TRAMADOL (CHLORHYDRATE DE) [Concomitant]
     Active Substance: TRAMADOL HYDROCHLORIDE
  6. ATORVASTATINE [Concomitant]
     Active Substance: ATORVASTATIN
  7. PIPERACILLINE SODIQUE [Concomitant]
     Active Substance: PIPERACILLIN
  8. KARDEGIC [Concomitant]
     Active Substance: ASPIRIN DL-LYSINE
  9. TAZOBACTAM [Concomitant]
     Active Substance: TAZOBACTAM
  10. MIDAZOLAM. [Concomitant]
     Active Substance: MIDAZOLAM
  11. FENTANYL. [Concomitant]
     Active Substance: FENTANYL
  12. VANCOMYCINE [Concomitant]
     Active Substance: VANCOMYCIN
  13. INSULINE [Concomitant]
     Active Substance: INSULIN NOS
  14. GAVISCON [Concomitant]
     Active Substance: ALUMINUM HYDROXIDE\MAGNESIUM CARBONATE

REACTIONS (1)
  - Necrosis [Not Recovered/Not Resolved]

NARRATIVE: CASE EVENT DATE: 20210225
